FAERS Safety Report 9255726 (Version 1)
Quarter: 2013Q2

REPORT INFORMATION
  Report Type: Spontaneous
  Country: US (occurrence: US)
  Receive Date: 20130425
  Receipt Date: 20130425
  Transmission Date: 20140414
  Serious: Yes (Other)
  Sender: FDA-Public Use
  Company Number: US-ASTRAZENECA-2013SE26153

PATIENT
  Sex: Female

DRUGS (4)
  1. CRESTOR [Suspect]
     Indication: BLOOD CHOLESTEROL ABNORMAL
     Route: 048
     Dates: start: 2005, end: 20130319
  2. DIOVAN [Concomitant]
     Indication: BLOOD PRESSURE ABNORMAL
  3. SYNTHROID [Concomitant]
     Indication: THYROID DISORDER
  4. SYNTHROID [Concomitant]
     Indication: THYROID DISORDER

REACTIONS (7)
  - Foot fracture [Unknown]
  - Vitamin B12 increased [Unknown]
  - Hyperthyroidism [Unknown]
  - White blood cell count decreased [Unknown]
  - Headache [Unknown]
  - Myalgia [Unknown]
  - Hepatic enzyme increased [Unknown]
